FAERS Safety Report 4919121-X (Version None)
Quarter: 2006Q1

REPORT INFORMATION
  Report Type: 
  Country: None (occurrence: None)
  Receive Date: 20060216
  Receipt Date: 20060208
  Transmission Date: 20060701
  Serious: Yes (Hospitalization, Other)
  Sender: FDA-Public Use
  Company Number: 2006020045

PATIENT
  Age: 78 Year
  Sex: Male
  Weight: 108.8633 kg

DRUGS (3)
  1. CELEBREX [Suspect]
     Indication: PAIN
     Dosage: 1 IN 1 D
  2. BEXTRA [Suspect]
     Indication: PAIN
  3. HYTRIN (TETRAZOSIN HYDROCHLORIDE) [Concomitant]

REACTIONS (6)
  - ABASIA [None]
  - BLOOD CHOLESTEROL INCREASED [None]
  - MYOCARDIAL INFARCTION [None]
  - PAIN IN EXTREMITY [None]
  - POLLAKIURIA [None]
  - THROMBOSIS [None]
